FAERS Safety Report 12722376 (Version 1)
Quarter: 2016Q3

REPORT INFORMATION
  Report Type: Spontaneous
  Country: DE (occurrence: DE)
  Receive Date: 20160907
  Receipt Date: 20160907
  Transmission Date: 20161109
  Serious: Yes (Life-Threatening, Other)
  Sender: FDA-Public Use
  Company Number: DE-ABBVIE-16P-062-1719483-00

PATIENT
  Age: 18 Year
  Sex: Male
  Weight: 70 kg

DRUGS (13)
  1. NOVAMINSULFON [Concomitant]
     Active Substance: METAMIZOLE
     Indication: DIABETIC COMA
     Route: 042
     Dates: start: 20160820, end: 20160822
  2. PANTOZOL [Concomitant]
     Active Substance: PANTOPRAZOLE SODIUM
     Indication: PROPHYLAXIS AGAINST GASTROINTESTINAL ULCER
     Route: 048
     Dates: start: 20160820
  3. SODIUM CHLORIDE. [Concomitant]
     Active Substance: SODIUM CHLORIDE
     Indication: ACIDOSIS
     Dosage: SEVERAL TIMES 100ML
     Route: 042
  4. SODIUM BICARBONATE. [Concomitant]
     Active Substance: SODIUM BICARBONATE
     Indication: ACIDOSIS
  5. ISOFLURANE. [Suspect]
     Active Substance: ISOFLURANE
     Indication: SEDATION
     Dosage: ENDTIDAL 0.6 VOL%
     Route: 055
     Dates: start: 20160821, end: 20160821
  6. CALCIUM [Concomitant]
     Active Substance: CALCIUM
     Indication: MYALGIA
  7. PROPOFOL. [Concomitant]
     Active Substance: PROPOFOL
     Indication: SEDATION
     Dates: start: 20160821, end: 20160821
  8. MAGNESIUM [Concomitant]
     Active Substance: MAGNESIUM
     Indication: MYALGIA
     Dosage: UNCONTROLLED
  9. CLEXANE [Concomitant]
     Active Substance: ENOXAPARIN SODIUM
     Indication: THROMBOSIS PROPHYLAXIS
     Dosage: 0.2
     Route: 058
     Dates: start: 20160820
  10. AMINOVEN [Concomitant]
     Active Substance: AMINO ACIDS
     Indication: PARENTERAL NUTRITION
     Route: 042
  11. JONOSTERIL [Concomitant]
     Active Substance: CALCIUM ACETATE\MAGNESIUM ACETATE\POTASSIUM ACETATE\SODIUM ACETATE\SODIUM CHLORIDE
     Indication: FLUID REPLACEMENT
     Route: 042
  12. INSULINE [Concomitant]
     Active Substance: INSULIN NOS
     Indication: PARENTERAL NUTRITION
  13. TROMETAMOL [Concomitant]
     Active Substance: TROMETHAMINE
     Indication: ACIDOSIS
     Dosage: CONTINUOUSLY 6.3 ML/H
     Route: 042

REACTIONS (11)
  - Electrocardiogram repolarisation abnormality [Unknown]
  - Cardiovascular insufficiency [Unknown]
  - Blood sodium abnormal [Unknown]
  - Myoglobin blood increased [Unknown]
  - Troponin T increased [Unknown]
  - Blood creatine phosphokinase increased [Unknown]
  - Blood creatine phosphokinase MB increased [Unknown]
  - Hyperthermia malignant [Recovering/Resolving]
  - PCO2 increased [Unknown]
  - Blood lactic acid increased [Unknown]
  - Device issue [Unknown]

NARRATIVE: CASE EVENT DATE: 20160821
